FAERS Safety Report 8931129 (Version 1)
Quarter: 2012Q4

REPORT INFORMATION
  Report Type: 
  Country: US (occurrence: US)
  Receive Date: 20121128
  Receipt Date: 20121128
  Transmission Date: 20130627
  Serious: No
  Sender: FDA-Public Use
  Company Number: US-TEVA-372380USA

PATIENT
  Age: 68 Year
  Sex: Female
  Weight: 47.67 kg

DRUGS (4)
  1. ACTIQ [Suspect]
     Indication: BACK PAIN
     Route: 048
  2. DIPHENHYDRAMINE [Concomitant]
     Indication: INSOMNIA
  3. ZOFRAN [Concomitant]
     Indication: IRRITABLE BOWEL SYNDROME
  4. CALCIUM [Concomitant]
     Indication: OSTEOPENIA

REACTIONS (6)
  - Abdominal discomfort [Unknown]
  - Off label use [Unknown]
  - Nausea [Unknown]
  - Weight decreased [Unknown]
  - Nutritional condition abnormal [Unknown]
  - Malaise [Unknown]
